FAERS Safety Report 23669355 (Version 1)
Quarter: 2024Q1

REPORT INFORMATION
  Report Type: Spontaneous
  Country: US (occurrence: None)
  Receive Date: 20240324
  Receipt Date: 20240324
  Transmission Date: 20240410
  Serious: Yes (Other)
  Sender: FDA-Public Use
  Company Number: None

PATIENT
  Age: 68 Year
  Sex: Female
  Weight: 60.75 kg

DRUGS (7)
  1. MUSCLE RUB ULTRA STRENGTH CVS [Suspect]
     Active Substance: CAMPHOR (SYNTHETIC)\MENTHOL\METHYL SALICYLATE
     Indication: Myalgia
     Route: 061
     Dates: start: 20240317, end: 20240317
  2. MUSCLE RUB ULTRA STRENGTH CVS [Suspect]
     Active Substance: CAMPHOR (SYNTHETIC)\MENTHOL\METHYL SALICYLATE
     Indication: Arthralgia
  3. Daily vitamin [Concomitant]
  4. CALCIUM [Concomitant]
     Active Substance: CALCIUM
  5. MELATONIN [Concomitant]
  6. BIOTIN [Concomitant]
  7. flaxseed oil [Concomitant]

REACTIONS (5)
  - Application site pain [None]
  - Skin weeping [None]
  - Pain [None]
  - Application site erythema [None]
  - Application site vesicles [None]

NARRATIVE: CASE EVENT DATE: 20240317
